FAERS Safety Report 7805206-7 (Version None)
Quarter: 2011Q4

REPORT INFORMATION
  Report Type: 
  Country: None (occurrence: None)
  Receive Date: 20111010
  Receipt Date: 20110930
  Transmission Date: 20120403
  Serious: Yes (Hospitalization)
  Sender: FDA-Public Use
  Company Number: FR-NOVOPROD-336453

PATIENT

DRUGS (15)
  1. VICTOZA [Suspect]
     Dosage: 1.2 MG, QD
     Route: 058
     Dates: start: 20110315
  2. ACTOS [Concomitant]
     Dosage: 30 MG, QD
     Route: 048
  3. SPIRIVA [Concomitant]
  4. ATACAND [Concomitant]
     Dosage: 16 MG, QD
     Route: 048
  5. LUMIGAN [Concomitant]
  6. VICTOZA [Suspect]
     Indication: TYPE 2 DIABETES MELLITUS
     Dosage: UNK
     Route: 058
     Dates: start: 20101116
  7. VICTOZA [Suspect]
     Dosage: 1.8 MG, QD
     Route: 058
     Dates: start: 20101116
  8. ASPEGIC 1000 [Concomitant]
     Dosage: 250 MG, QD
     Route: 048
  9. SERETIDE [Concomitant]
  10. TRAMADOL HCL [Concomitant]
  11. VICTOZA [Suspect]
     Dosage: 0.6 MG, QD
     Route: 058
     Dates: start: 20110311
  12. GLUCOPHAGE [Concomitant]
     Indication: DIABETES MELLITUS
     Dosage: 3 G, QD
     Route: 048
  13. CRESTOR [Concomitant]
     Dosage: 20 MG, QD
     Route: 048
  14. INDAPAMIDE [Concomitant]
     Dosage: ONE DOSE, QD
     Route: 065
  15. LEVOTHYROXINE SODIUM [Concomitant]
     Dosage: 150 A?G, QD
     Route: 048

REACTIONS (1)
  - PNEUMONIA [None]
